FAERS Safety Report 10847044 (Version 1)
Quarter: 2015Q1

REPORT INFORMATION
  Report Type: Spontaneous
  Country: US (occurrence: US)
  Receive Date: 20150220
  Receipt Date: 20150220
  Transmission Date: 20150721
  Serious: No
  Sender: FDA-Public Use
  Company Number: US-009507513-1502USA008809

PATIENT
  Sex: Female

DRUGS (1)
  1. ZEGERID [Suspect]
     Active Substance: OMEPRAZOLE\SODIUM BICARBONATE
     Indication: PRODUCT USED FOR UNKNOWN INDICATION
     Dosage: UNK, UNKNOWN
     Route: 048
     Dates: start: 20150210

REACTIONS (4)
  - Drug effect delayed [Unknown]
  - Headache [Unknown]
  - Muscle spasms [Unknown]
  - Constipation [Unknown]

NARRATIVE: CASE EVENT DATE: 201502
